FAERS Safety Report 8941196 (Version 1)
Quarter: 2012Q4

REPORT INFORMATION
  Report Type: Report from Study
  Country: US (occurrence: US)
  Receive Date: 20121203
  Receipt Date: 20121203
  Transmission Date: 20130627
  Serious: Yes (Hospitalization)
  Sender: FDA-Public Use
  Company Number: US-ROCHE-1162278

PATIENT
  Sex: Female

DRUGS (1)
  1. CAPECITABINE [Suspect]
     Indication: NEOPLASM MALIGNANT
     Route: 065

REACTIONS (7)
  - Hip fracture [Unknown]
  - Pain in extremity [Unknown]
  - Erythema [Unknown]
  - Hypoaesthesia [Unknown]
  - Haemorrhage [Unknown]
  - Pain in extremity [Unknown]
  - Dry skin [Unknown]
